FAERS Safety Report 9471248 (Version 1)
Quarter: 2013Q3

REPORT INFORMATION
  Report Type: Report from Study
  Country: JP (occurrence: JP)
  Receive Date: 20130822
  Receipt Date: 20130822
  Transmission Date: 20140515
  Serious: Yes (Hospitalization)
  Sender: FDA-Public Use
  Company Number: JP-BRISTOL-MYERS SQUIBB COMPANY-19190552

PATIENT
  Age: 47 Year
  Sex: Male

DRUGS (9)
  1. REYATAZ [Suspect]
     Indication: HIV INFECTION
     Route: 048
     Dates: start: 20051012
  2. NORVIR [Suspect]
     Indication: HIV INFECTION
     Route: 048
     Dates: start: 20051012
  3. TRUVADA [Suspect]
     Indication: HIV INFECTION
     Dosage: 1 DF = 1 TABLET
     Route: 048
     Dates: start: 20051012
  4. GLYCYRON [Concomitant]
     Indication: CHRONIC HEPATITIS C
     Dosage: 1 DF= 1 TABLET
     Route: 048
     Dates: start: 20050401
  5. GLYCYRON [Concomitant]
     Indication: LIVER DISORDER
     Dosage: 1 DF= 1 TABLET
     Route: 048
     Dates: start: 20050401
  6. URSO [Concomitant]
     Indication: CHRONIC HEPATITIS C
     Dosage: 1DF:1TAB
     Route: 048
     Dates: start: 20070401
  7. URSO [Concomitant]
     Indication: LIVER DISORDER
     Dosage: 1DF:1TAB
     Route: 048
     Dates: start: 20070401
  8. IMIQUIMOD [Concomitant]
     Indication: ANOGENITAL WARTS
     Dosage: OINTMENT
     Route: 061
     Dates: start: 20120605, end: 20120918
  9. LORAZEPAM [Concomitant]
     Indication: NEUROSIS
     Dosage: 1DF: 1-2 TABS/D
     Route: 048
     Dates: start: 20121109

REACTIONS (2)
  - Osteoporosis [Not Recovered/Not Resolved]
  - Femoral neck fracture [Not Recovered/Not Resolved]
